FAERS Safety Report 20982163 (Version 1)
Quarter: 2022Q2

REPORT INFORMATION
  Report Type: Spontaneous
  Country: US (occurrence: US)
  Receive Date: 20220620
  Receipt Date: 20220620
  Transmission Date: 20220721
  Serious: Yes (Death, Other)
  Sender: FDA-Public Use
  Company Number: US-PFIZER INC-PV202200000006

PATIENT
  Age: 16 Year
  Sex: Female

DRUGS (10)
  1. SIROLIMUS [Suspect]
     Active Substance: SIROLIMUS
     Dosage: UNK
  2. CARFILZOMIB [Concomitant]
     Active Substance: CARFILZOMIB
  3. CYCLOPHOSPHAMIDE [Concomitant]
     Active Substance: CYCLOPHOSPHAMIDE
  4. DENOSUMAB [Concomitant]
     Active Substance: DENOSUMAB
     Dosage: UNK
  5. ETOPOSIDE [Concomitant]
     Active Substance: ETOPOSIDE
  6. GEMCITABINE [Concomitant]
     Active Substance: GEMCITABINE
  7. METHOTREXATE [Concomitant]
     Active Substance: METHOTREXATE
     Dosage: UNK
  8. MIFAMURTIDE [Concomitant]
     Active Substance: MIFAMURTIDE
     Dosage: UNK
  9. PAZOPANIB [Concomitant]
     Active Substance: PAZOPANIB
  10. THALIDOMIDE [Concomitant]
     Active Substance: THALIDOMIDE
     Dosage: UNK

REACTIONS (2)
  - Respiratory failure [Fatal]
  - Mucosal inflammation [Unknown]
